FAERS Safety Report 5132880-9 (Version None)
Quarter: 2006Q4

REPORT INFORMATION
  Report Type: 
  Country: None (occurrence: None)
  Receive Date: 20061023
  Receipt Date: 20060922
  Transmission Date: 20070319
  Serious: Yes (Hospitalization)
  Sender: FDA-Public Use
  Company Number: FR-JNJFOC-20060905941

PATIENT
  Sex: Female
  Weight: 57.2 kg

DRUGS (9)
  1. REMINYL [Suspect]
     Indication: DEMENTIA
     Route: 048
     Dates: start: 20060915, end: 20060916
  2. FUROSEMIDE [Concomitant]
     Indication: CARDIAC FAILURE
  3. PRAVASTATIN [Concomitant]
     Indication: HYPERCHOLESTEROLAEMIA
     Route: 065
  4. PREVISCAN [Concomitant]
     Indication: PULMONARY EMBOLISM
     Route: 065
  5. ALLOPURINOL [Concomitant]
     Route: 065
  6. EQUANIL [Concomitant]
     Indication: ABNORMAL BEHAVIOUR
     Route: 065
  7. OGAST [Concomitant]
     Route: 065
  8. DOLIPRANE [Concomitant]
     Indication: BACK PAIN
     Route: 065
  9. CARDENSIEL [Concomitant]
     Indication: HYPERTENSION
     Route: 065

REACTIONS (2)
  - ASTHENIA [None]
  - HYPOTHERMIA [None]
